FAERS Safety Report 15083692 (Version 4)
Quarter: 2018Q3

REPORT INFORMATION
  Report Type: Spontaneous
  Country: US (occurrence: US)
  Receive Date: 20180628
  Receipt Date: 20180927
  Transmission Date: 20181010
  Serious: No
  Sender: FDA-Public Use
  Company Number: US-CLOVIS ONCOLOGY-CLO-2018-000618

PATIENT
  Age: 80 Year
  Sex: Female

DRUGS (2)
  1. RUBRACA [Suspect]
     Active Substance: RUCAPARIB CAMSYLATE
     Indication: OVARIAN CANCER
     Dosage: 600 MG, BID
     Route: 048
     Dates: start: 20180601
  2. RUBRACA [Suspect]
     Active Substance: RUCAPARIB CAMSYLATE
     Dosage: UNK
     Route: 065
     Dates: start: 20180516

REACTIONS (10)
  - Rash pruritic [Recovered/Resolved]
  - Drug dose omission [Unknown]
  - Dry mouth [Unknown]
  - Oropharyngeal pain [Unknown]
  - Abdominal pain upper [Recovered/Resolved]
  - Paranasal sinus hypersecretion [Unknown]
  - Lip dry [Unknown]
  - Nausea [Not Recovered/Not Resolved]
  - Productive cough [Unknown]
  - Diarrhoea [Recovered/Resolved]

NARRATIVE: CASE EVENT DATE: 2018
